FAERS Safety Report 11897582 (Version 2)
Quarter: 2016Q1

REPORT INFORMATION
  Report Type: Spontaneous
  Country: US (occurrence: US)
  Receive Date: 20160108
  Receipt Date: 20160122
  Transmission Date: 20160526
  Serious: Yes (Hospitalization)
  Sender: FDA-Public Use
  Company Number: US-BEH-2015057348

PATIENT
  Sex: Female
  Weight: 99 kg

DRUGS (16)
  1. HYDRALAZINE [Concomitant]
     Active Substance: HYDRALAZINE HYDROCHLORIDE
  2. CLONAZEPAM. [Concomitant]
     Active Substance: CLONAZEPAM
  3. BACLOFEN. [Concomitant]
     Active Substance: BACLOFEN
  4. CIPROFLOXACIN. [Concomitant]
     Active Substance: CIPROFLOXACIN
  5. ATENOLOL. [Concomitant]
     Active Substance: ATENOLOL
  6. LEVAQUIN [Concomitant]
     Active Substance: LEVOFLOXACIN
  7. DIPHENHYDRAMINE. [Concomitant]
     Active Substance: DIPHENHYDRAMINE
  8. EPIPEN [Concomitant]
     Active Substance: EPINEPHRINE
  9. FENTANYL. [Concomitant]
     Active Substance: FENTANYL
  10. HIZENTRA [Suspect]
     Active Substance: HUMAN IMMUNOGLOBULIN G
     Indication: ASTHMA
     Route: 058
     Dates: start: 20110524
  11. LIDOCAINE/PRILOCAINE [Concomitant]
  12. CEFDINIR. [Concomitant]
     Active Substance: CEFDINIR
  13. ALPRAZOLAM. [Concomitant]
     Active Substance: ALPRAZOLAM
  14. KLOR-CON [Concomitant]
     Active Substance: POTASSIUM CHLORIDE
  15. HIZENTRA [Suspect]
     Active Substance: HUMAN IMMUNOGLOBULIN G
     Indication: BRONCHITIS
     Route: 058
     Dates: start: 20110524
  16. PREDNISONE. [Concomitant]
     Active Substance: PREDNISONE

REACTIONS (4)
  - Sepsis [Recovering/Resolving]
  - Renal failure [Recovering/Resolving]
  - Drug dose omission [Unknown]
  - Asthenia [Recovering/Resolving]
